FAERS Safety Report 6170401-2 (Version None)
Quarter: 2009Q2

REPORT INFORMATION
  Report Type: 
  Country: None (occurrence: None)
  Receive Date: 20090427
  Receipt Date: 20090427
  Transmission Date: 20091009
  Serious: No
  Sender: FDA-Public Use
  Company Number: None

PATIENT
  Age: 23 Year
  Sex: Male
  Weight: 97 kg

DRUGS (11)
  1. NAFCILLIN SODIUM [Suspect]
     Indication: STAPHYLOCOCCAL BACTERAEMIA
     Dosage: 2G IV Q4 HOUR
     Route: 042
     Dates: start: 20081204
  2. METHYLPREDNISOLONE 4MG TAB [Concomitant]
  3. NIFEDIPINE [Concomitant]
  4. TESTOSTERONE [Concomitant]
  5. ACYCLOVIR [Concomitant]
  6. CLONAZEPAM [Concomitant]
  7. CLONIDINE [Concomitant]
  8. DOXAZOSIN MESYLATE [Concomitant]
  9. HYDROXYCHLOROQUINE SULFATE [Concomitant]
  10. INSULIN [Concomitant]
  11. LANSOPRAZOLE [Concomitant]

REACTIONS (4)
  - HAEMOGLOBIN DECREASED [None]
  - PLATELET COUNT DECREASED [None]
  - WHITE BLOOD CELL COUNT DECREASED [None]
  - WHITE BLOOD CELL COUNT INCREASED [None]
